FAERS Safety Report 12145938 (Version 1)
Quarter: 2020Q3

REPORT INFORMATION
  Report Type: Report from Study
  Country: US (occurrence: US)
  Receive Date: 20160304
  Receipt Date: 20160304
  Transmission Date: 20201105
  Serious: Yes (Hospitalization)
  Sender: FDA-Public Use
  Company Number: US-JNJFOC-20160300420

PATIENT
  Age: 42 Year
  Sex: Female
  Weight: 91.9 kg

DRUGS (2)
  1. BLINDED; GUSELKUMAB [Suspect]
     Active Substance: GUSELKUMAB
     Indication: PSORIASIS
     Route: 058
     Dates: start: 20150129
  2. USTEKINUMAB [Suspect]
     Active Substance: USTEKINUMAB
     Indication: PSORIASIS
     Route: 058
     Dates: start: 20150129

REACTIONS (7)
  - Hypoaesthesia [None]
  - Muscular weakness [None]
  - Migraine [Not Recovered/Not Resolved]
  - Nervous system disorder [None]
  - Paraesthesia [None]
  - Blindness unilateral [None]
  - Visual impairment [None]

NARRATIVE: CASE EVENT DATE: 20160226
